FAERS Safety Report 17697216 (Version 1)
Quarter: 2020Q2

REPORT INFORMATION
  Report Type: Spontaneous
  Country: CN (occurrence: CN)
  Receive Date: 20200423
  Receipt Date: 20200423
  Transmission Date: 20200714
  Serious: Yes (Other)
  Sender: FDA-Public Use
  Company Number: CN-ASTRAZENECA-2020SE52873

PATIENT
  Age: 18533 Day
  Sex: Female

DRUGS (5)
  1. BRICANYL [Suspect]
     Active Substance: TERBUTALINE SULFATE
     Route: 055
     Dates: start: 20200329, end: 20200330
  2. IODIXANOL INJECTION [Suspect]
     Active Substance: IODIXANOL
     Indication: NEUROENDOCRINE TUMOUR OF THE LUNG
     Route: 042
     Dates: start: 20200328, end: 20200328
  3. SALBUTAMOL SULFATE NEBULES INHALATION SOLUTION [Suspect]
     Active Substance: ALBUTEROL SULFATE
     Indication: NEUROENDOCRINE TUMOUR OF THE LUNG
     Route: 055
     Dates: start: 20200328, end: 20200328
  4. PULMICORT RESPULES [Suspect]
     Active Substance: BUDESONIDE
     Route: 055
     Dates: start: 20200329, end: 20200330
  5. IODIXANOL INJECTION [Suspect]
     Active Substance: IODIXANOL
     Indication: DIAGNOSTIC ASPIRATION
     Route: 042
     Dates: start: 20200328, end: 20200328

REACTIONS (2)
  - Flushing [Recovered/Resolved]
  - Pruritus [Recovered/Resolved]

NARRATIVE: CASE EVENT DATE: 20200329
